FAERS Safety Report 18877757 (Version 1)
Quarter: 2021Q1

REPORT INFORMATION
  Report Type: Spontaneous
  Country: US (occurrence: US)
  Receive Date: 20210211
  Receipt Date: 20210211
  Transmission Date: 20210420
  Serious: Yes (Other)
  Sender: FDA-Public Use
  Company Number: None

PATIENT
  Age: 54 Year
  Sex: Female
  Weight: 101.25 kg

DRUGS (5)
  1. MONTELUKAST [Suspect]
     Active Substance: MONTELUKAST SODIUM
     Indication: ASTHMA
     Dosage: ?          QUANTITY:1 TABLET(S);?
     Route: 048
     Dates: start: 20200517, end: 20210203
  2. MULTI?VIT FOR WOMEN OVER 50 [Concomitant]
  3. VIT D [Concomitant]
     Active Substance: VITAMIN D NOS
  4. GLYCOSAMINE [Concomitant]
  5. VITAMIN B COMPLEX [Concomitant]
     Active Substance: CYANOCOBALAMIN\DEXPANTHENOL\NIACINAMIDE\PYRIDOXINE HYDROCHLORIDE\RIBOFLAVIN 5^-PHOSPHATE SODIUM\THIAMINE HYDROCHLORIDE\VITAMIN B COMPLEX

REACTIONS (6)
  - Fear [None]
  - Anxiety [None]
  - Depression [None]
  - Panic attack [None]
  - Malaise [None]
  - Withdrawal syndrome [None]

NARRATIVE: CASE EVENT DATE: 20210205
